FAERS Safety Report 13845184 (Version 1)
Quarter: 2017Q3

REPORT INFORMATION
  Report Type: Spontaneous
  Country: US (occurrence: US)
  Receive Date: 20170808
  Receipt Date: 20170808
  Transmission Date: 20171127
  Serious: Yes (Other)
  Sender: FDA-Public Use
  Company Number: US-ABBVIE-16P-163-1780403-00

PATIENT
  Sex: Male

DRUGS (3)
  1. KEPPRA [Concomitant]
     Active Substance: LEVETIRACETAM
     Indication: PRODUCT USED FOR UNKNOWN INDICATION
  2. TRLIPTAL [Concomitant]
     Indication: PRODUCT USED FOR UNKNOWN INDICATION
  3. DEPAKOTE ER [Suspect]
     Active Substance: DIVALPROEX SODIUM
     Indication: SEIZURE
     Dosage: 1500 MG QAM??2000 MG QPM
     Route: 048

REACTIONS (3)
  - Medication residue present [Not Recovered/Not Resolved]
  - Seizure [Not Recovered/Not Resolved]
  - Anticonvulsant drug level below therapeutic [Not Recovered/Not Resolved]
